FAERS Safety Report 5918062-9 (Version None)
Quarter: 2008Q4

REPORT INFORMATION
  Report Type: 
  Country: None (occurrence: None)
  Receive Date: 20081014
  Receipt Date: 20081008
  Transmission Date: 20090506
  Serious: Yes (Other)
  Sender: FDA-Public Use
  Company Number: US-ASTRAZENECA-2008UW22005

PATIENT
  Age: 59 Year
  Sex: Female

DRUGS (12)
  1. ARIMIDEX [Suspect]
     Dates: start: 20070301
  2. COREG [Concomitant]
  3. MICRO-K [Concomitant]
  4. ASPIRIN [Concomitant]
  5. GLUCOPHAGE [Concomitant]
  6. AVANDIA [Concomitant]
  7. LANTUS [Concomitant]
  8. HYZAAR [Concomitant]
  9. LIPITOR [Concomitant]
  10. LUMIGAN [Concomitant]
  11. FLEXERIL [Concomitant]
  12. VITAMINS [Concomitant]

REACTIONS (7)
  - BLOOD URINE PRESENT [None]
  - CARPAL TUNNEL SYNDROME [None]
  - CONDITION AGGRAVATED [None]
  - GLAUCOMA [None]
  - HAEMORRHOIDS [None]
  - HYPERTENSION [None]
  - SCIATICA [None]
